FAERS Safety Report 21193921 (Version 8)
Quarter: 2022Q4

REPORT INFORMATION
  Report Type: Report from Study
  Country: ES (occurrence: None)
  Receive Date: 20220810
  Receipt Date: 20221019
  Transmission Date: 20230113
  Serious: Yes (Life-Threatening, Hospitalization)
  Sender: FDA-Public Use
  Company Number: ES-ROCHE-3156327

PATIENT
  Age: 69 Year
  Sex: Male
  Weight: 82.3 kg

DRUGS (3)
  1. ATEZOLIZUMAB [Suspect]
     Active Substance: ATEZOLIZUMAB
     Indication: Bladder cancer
     Dosage: 14/JUL/2022 WAS MOST RECENT DOSE OF ATEZLOIZUMAB PRIOR TO AE
     Route: 041
     Dates: start: 20220420
  2. BCG VACCINE [Suspect]
     Active Substance: BCG VACCINE
     Indication: Bladder cancer
     Dosage: LAST DOSE ON 28/JUL/2022 BEFORE EVENT (50 ML), CUMULATIVE DOSE 450 ML
     Route: 043
     Dates: start: 20220421
  3. METFORMIN [Concomitant]
     Active Substance: METFORMIN HYDROCHLORIDE
     Route: 048

REACTIONS (1)
  - Muscle rupture [Not Recovered/Not Resolved]

NARRATIVE: CASE EVENT DATE: 20220730
